FAERS Safety Report 16200625 (Version 1)
Quarter: 2019Q2

REPORT INFORMATION
  Report Type: Report from Study
  Country: None (occurrence: US)
  Receive Date: 20190416
  Receipt Date: 20190416
  Transmission Date: 20190711
  Serious: Yes (Other)
  Sender: FDA-Public Use
  Company Number: US-ABBVIE-19K-163-2696787-00

PATIENT
  Age: 67 Year
  Sex: Female
  Weight: 68.55 kg

DRUGS (1)
  1. HUMIRA [Suspect]
     Active Substance: ADALIMUMAB
     Indication: RHEUMATOID ARTHRITIS
     Route: 058

REACTIONS (2)
  - Type 2 diabetes mellitus [Unknown]
  - Ingrowing nail [Unknown]

NARRATIVE: CASE EVENT DATE: 2019
